FAERS Safety Report 14152601 (Version 2)
Quarter: 2018Q1

REPORT INFORMATION
  Report Type: Spontaneous
  Country: JP (occurrence: JP)
  Receive Date: 20171102
  Receipt Date: 20180103
  Transmission Date: 20180508
  Serious: Yes (Other)
  Sender: FDA-Public Use
  Company Number: JP-AMGEN-JPNSP2017164771

PATIENT
  Age: 76 Year
  Sex: Male

DRUGS (50)
  1. DOMPERIDONE [Concomitant]
     Active Substance: DOMPERIDONE
  2. RENAGEL [Concomitant]
     Active Substance: SEVELAMER HYDROCHLORIDE
     Dosage: 1500 MG, UNK
     Dates: start: 20170315, end: 20170913
  3. LINZESS [Concomitant]
     Active Substance: LINACLOTIDE
     Dosage: UNK
     Dates: start: 20171002, end: 20171020
  4. EPOGIN [Concomitant]
     Active Substance: ERYTHROPOIETIN
     Dosage: 4500 UNIT, QWK (AT THE END OF DIALYSIS)
     Route: 058
     Dates: start: 20170814, end: 20171020
  5. EPOGIN [Concomitant]
     Active Substance: ERYTHROPOIETIN
     Dosage: 3000 UNIT, 3 TIMES/WK (AT THE END OF DIALYSIS)
     Dates: start: 20171023
  6. DIASTASE [Concomitant]
     Active Substance: DIASTASE
     Dosage: 0.4 G, UNK
  7. DIASTASE [Concomitant]
     Active Substance: DIASTASE
     Dosage: 0.2 G, UNK
     Dates: start: 20170913, end: 20170918
  8. MEDICON [Concomitant]
     Active Substance: DEXTROMETHORPHAN HYDROBROMIDE
     Dosage: 0.3 G, UNK
  9. DL-METHYLEPHEDRINE HYDROCHLORIDE [Concomitant]
     Active Substance: METHYLEPHEDRINE HYDROCHLORIDE, (+/-)-
     Dosage: 0.6 G, UNK
  10. WARFARIN [Concomitant]
     Active Substance: WARFARIN
     Dosage: 1 MG, UNK
     Dates: start: 20151022, end: 20170906
  11. DOPS [Concomitant]
     Active Substance: DROXIDOPA
     Dosage: 1 DOSAGE FORM (BEFORE DIALYSIS)
     Dates: start: 20171011, end: 20171011
  12. MAXACALCITOL [Concomitant]
     Active Substance: MAXACALCITOL
     Dosage: 5 MG, 2 TIMES/WK (AT THE END OF DIALYSIS)
     Dates: start: 20170821, end: 20170823
  13. ACETAMINOPHEN. [Concomitant]
     Active Substance: ACETAMINOPHEN
     Dosage: 1 G, UNK
     Dates: start: 20170913, end: 20170918
  14. ALLERGIN [Concomitant]
     Dosage: 1 G, UNK
     Dates: start: 20170913, end: 20170918
  15. ALLERGIN [Concomitant]
     Dosage: 0.4 G, UNK
  16. AMLODIPINE [Concomitant]
     Active Substance: AMLODIPINE BESYLATE
     Dosage: UNK
     Dates: end: 20171001
  17. WARFARIN [Concomitant]
     Active Substance: WARFARIN
     Dosage: 0.5 MG, UNK
     Dates: start: 20170907
  18. FAMOTIDINE. [Concomitant]
     Active Substance: FAMOTIDINE
  19. RENAGEL [Concomitant]
     Active Substance: SEVELAMER HYDROCHLORIDE
     Dosage: 750 MG, UNK
     Dates: start: 20170913, end: 20171011
  20. MAGMITT [Concomitant]
     Active Substance: MAGNESIUM OXIDE
     Dosage: UNK
     Dates: start: 20170802, end: 20171002
  21. ACETAMINOPHEN. [Concomitant]
     Active Substance: ACETAMINOPHEN
     Dosage: 1.5 G, UNK
  22. RISUMIC [Concomitant]
     Active Substance: AMEZINIUM METILSULFATE
     Dosage: 2 DOSAGE FORM (BEFORE DIALYSIS)
     Dates: start: 20171002
  23. ACETAMINOPHEN. [Concomitant]
     Active Substance: ACETAMINOPHEN
     Dosage: 0.5 G, UNK
  24. MEDICON [Concomitant]
     Active Substance: DEXTROMETHORPHAN HYDROBROMIDE
     Dosage: 0.6 G, UNK
  25. DL-METHYLEPHEDRINE HYDROCHLORIDE [Concomitant]
     Active Substance: METHYLEPHEDRINE HYDROCHLORIDE, (+/-)-
     Dosage: 0.3 G, UNK
  26. RISUMIC [Concomitant]
     Active Substance: AMEZINIUM METILSULFATE
     Dosage: 1 DOSAGE FORM (BEFORE DIALYSIS)
     Dates: start: 20170927, end: 20170929
  27. LAXODATE [Concomitant]
     Dosage: UNK
     Dates: start: 20171021
  28. HUSTAZOL [Concomitant]
     Active Substance: CLOPERASTINE
     Dosage: 0.6 G, UNK
  29. TAKA-DIASTASE [Concomitant]
     Active Substance: DIASTASE
     Dosage: 1 G, UNK
     Dates: start: 20170913, end: 20170918
  30. TEMOCAPRIL HYDROCHLORIDE [Concomitant]
     Active Substance: TEMOCAPRIL HYDROCHLORIDE
     Dosage: UNK
     Dates: end: 20171007
  31. DOPS [Concomitant]
     Active Substance: DROXIDOPA
     Dosage: 2 DOSAGE FORM (BEFORE DIALYSIS), UNK
     Dates: start: 20171013
  32. EPOGIN [Concomitant]
     Active Substance: ERYTHROPOIETIN
     Dosage: 3000 UNIT, QWK (AT THE END OF DIALYSIS)
     Dates: start: 20170102, end: 20170811
  33. MAXACALCITOL [Concomitant]
     Active Substance: MAXACALCITOL
     Dosage: 5 MG, QWK (AT THE END OF DIALYSIS)
     Dates: start: 20170830, end: 20170913
  34. HUSTAZOL [Concomitant]
     Active Substance: CLOPERASTINE
     Dosage: 0.2 G, UNK
  35. TAKA-DIASTASE [Concomitant]
     Active Substance: DIASTASE
     Dosage: 0.25 G, UNK
  36. PARSABIV [Suspect]
     Active Substance: ETELCALCETIDE HYDROCHLORIDE
     Indication: HYPERPARATHYROIDISM SECONDARY
     Dosage: 5 MG, 3 TIMES/WK (AT THE END OF EACH DIALYSIS)
     Route: 042
     Dates: start: 20170818, end: 20170911
  37. AVAPRO [Concomitant]
     Active Substance: IRBESARTAN
     Dosage: 100 MG, UNK
     Dates: end: 20171001
  38. D-SORBITOL [Concomitant]
     Dosage: UNK
     Dates: start: 20170919
  39. ALLERGIN [Concomitant]
     Dosage: 0.5 G, UNK
  40. HUSTAZOL [Concomitant]
     Active Substance: CLOPERASTINE
     Dosage: 0.3 G, UNK
  41. PARSABIV [Suspect]
     Active Substance: ETELCALCETIDE HYDROCHLORIDE
     Dosage: 7.5 MG, 3 TIMES/WK (AT THE END OF EACH DIALYSIS)
     Route: 042
     Dates: start: 20170913, end: 20171020
  42. ERYTHROPOIETIN [Concomitant]
     Active Substance: ERYTHROPOIETIN
     Dosage: UNK
  43. AVAPRO [Concomitant]
     Active Substance: IRBESARTAN
     Dosage: 50 MG, UNK
     Dates: start: 20171002, end: 20171106
  44. AVAPRO [Concomitant]
     Active Substance: IRBESARTAN
     Dosage: 100 MG, UNK
     Dates: start: 20171107
  45. ADALAT [Concomitant]
     Active Substance: NIFEDIPINE
     Dosage: UNK
     Dates: start: 20171111
  46. MAXACALCITOL [Concomitant]
     Active Substance: MAXACALCITOL
     Dosage: 5 MG, 3 TIMES/WK (AT THE END OF DIALYSIS)
     Dates: start: 20170102, end: 20170818
  47. ACETAMINOPHEN. [Concomitant]
     Active Substance: ACETAMINOPHEN
     Dosage: 0.25 G, UNK
  48. ALLERGIN [Concomitant]
     Dosage: 0.8 G, UNK
  49. HUSTAZOL [Concomitant]
     Active Substance: CLOPERASTINE
     Dosage: 0.4 G, UNK
     Dates: start: 20170913, end: 20170918
  50. TAKA-DIASTASE [Concomitant]
     Active Substance: DIASTASE
     Dosage: 0.5 G, UNK

REACTIONS (2)
  - Thrombocytopenia [Recovered/Resolved]
  - Anaemia [Recovered/Resolved]

NARRATIVE: CASE EVENT DATE: 20170904
